FAERS Safety Report 8308261-3 (Version None)
Quarter: 2012Q2

REPORT INFORMATION
  Report Type: 
  Country: None (occurrence: None)
  Receive Date: 20120424
  Receipt Date: 20120411
  Transmission Date: 20120825
  Serious: Yes (Other)
  Sender: FDA-Public Use
  Company Number: BR-ELI_LILLY_AND_COMPANY-BR201111000626

PATIENT
  Sex: Female
  Weight: 76 kg

DRUGS (10)
  1. FORTEO [Suspect]
     Indication: OSTEOPOROSIS
     Dosage: UNK UNK, QD
     Route: 058
     Dates: start: 20110701
  2. FORTEO [Suspect]
     Dosage: UNK, QD
     Route: 058
  3. GINKGO BILOBA [Concomitant]
     Indication: LABYRINTHITIS
     Dosage: UNK, UNKNOWN
     Route: 065
  4. ALPHAGAN [Concomitant]
     Indication: CATARACT
     Dosage: UNK, UNKNOWN
     Route: 065
  5. ARTIFICIAL TEARS [Concomitant]
     Dosage: UNK, UNKNOWN
     Route: 065
  6. LUMIGAN [Concomitant]
     Indication: CATARACT
     Dosage: UNK, UNKNOWN
     Route: 065
  7. OMEPRAZOLE [Concomitant]
     Dosage: UNK, UNKNOWN
     Route: 065
  8. VASOPRIL [Concomitant]
     Indication: HYPERTENSION
     Dosage: UNK, UNKNOWN
     Route: 065
  9. CALCIUM CARBONATE [Concomitant]
     Indication: OSTEOPOROSIS
     Dosage: UNK, UNKNOWN
     Route: 065
  10. OCUPRESS [Concomitant]
     Indication: CATARACT
     Dosage: UNK, UNKNOWN
     Route: 065

REACTIONS (19)
  - FATIGUE [None]
  - NO THERAPEUTIC RESPONSE [None]
  - INFLUENZA [None]
  - OEDEMA PERIPHERAL [None]
  - DYSSTASIA [None]
  - PAIN [None]
  - ARTHRALGIA [None]
  - PNEUMONIA [None]
  - DECREASED INTEREST [None]
  - DEPRESSED MOOD [None]
  - DECREASED APPETITE [None]
  - SOMNOLENCE [None]
  - PALPITATIONS [None]
  - WEIGHT INCREASED [None]
  - CHEST PAIN [None]
  - ADVERSE EVENT [None]
  - DRUG INTERACTION [None]
  - HYPERHIDROSIS [None]
  - PAIN IN EXTREMITY [None]
